FAERS Safety Report 5100980-5 (Version None)
Quarter: 2006Q3

REPORT INFORMATION
  Report Type: 
  Country: None (occurrence: None)
  Receive Date: 20060911
  Receipt Date: 20060817
  Transmission Date: 20061208
  Serious: Yes (Life-Threatening)
  Sender: FDA-Public Use
  Company Number: JP-BAYER-200610973BYL

PATIENT
  Age: 82 Year
  Sex: Female
  Weight: 41 kg

DRUGS (8)
  1. AVELOX [Suspect]
     Indication: PNEUMONIA
     Dosage: TOTAL DAILY DOSE: 400 MG  UNIT DOSE: 400 MG
     Route: 048
     Dates: start: 20060811, end: 20060814
  2. LANIRAPID [Concomitant]
     Indication: CARDIAC FAILURE
     Dosage: TOTAL DAILY DOSE: 0.05 MG  UNIT DOSE: 0.05 MG
     Route: 048
     Dates: start: 20050511
  3. OMEPRAZOLE [Concomitant]
     Indication: REFLUX OESOPHAGITIS
     Dosage: TOTAL DAILY DOSE: 20 MG  UNIT DOSE: 20 MG
     Route: 048
     Dates: start: 20040406
  4. VASOLAN [Concomitant]
     Indication: ARRHYTHMIA
     Dosage: TOTAL DAILY DOSE: 120 MG  UNIT DOSE: 40 MG
     Route: 048
     Dates: start: 19970730
  5. CEROCRAL [Concomitant]
     Indication: VERTEBROBASILAR INSUFFICIENCY
     Dosage: TOTAL DAILY DOSE: 60 MG  UNIT DOSE: 20 MG
     Route: 048
     Dates: start: 19970730
  6. ACARDI [Concomitant]
     Indication: CARDIAC FAILURE
     Dosage: UNIT DOSE: 1.25 MG
     Route: 048
     Dates: start: 20050516
  7. LASIX [Concomitant]
     Indication: CARDIAC FAILURE
     Dosage: AS USED: 20-40 MG
     Route: 048
     Dates: start: 20050516
  8. AMARYL [Concomitant]
     Indication: DIABETES MELLITUS
     Dosage: TOTAL DAILY DOSE: 0.5 MG  UNIT DOSE: 1 MG
     Route: 048
     Dates: start: 20060523, end: 20060814

REACTIONS (2)
  - BLOOD PRESSURE DECREASED [None]
  - HYPOGLYCAEMIA [None]
